FAERS Safety Report 9892049 (Version 2)
Quarter: 2014Q2

REPORT INFORMATION
  Report Type: Spontaneous
  Country: US (occurrence: US)
  Receive Date: 20140212
  Receipt Date: 20140515
  Transmission Date: 20141212
  Serious: Yes (Hospitalization)
  Sender: FDA-Public Use
  Company Number: US-GLAXOSMITHKLINE-A1059447A

PATIENT
  Age: 92 Year
  Sex: Female

DRUGS (9)
  1. FLIXOTIDE [Suspect]
     Indication: CHRONIC OBSTRUCTIVE PULMONARY DISEASE
     Dosage: 2PUFF TWICE PER DAY
     Route: 055
     Dates: start: 2002
  2. LABETALOL [Concomitant]
  3. MINI ASPIRIN [Concomitant]
  4. SIMVASTATIN [Concomitant]
  5. FUROSEMIDE [Concomitant]
  6. POTASSIUM [Concomitant]
  7. SYNTHROID [Concomitant]
  8. VITAMINS [Concomitant]
  9. SUPPLEMENT [Concomitant]

REACTIONS (12)
  - Hip fracture [Unknown]
  - Blood potassium decreased [Unknown]
  - Cough [Unknown]
  - Dehydration [Unknown]
  - Myocardial infarction [Unknown]
  - Lower respiratory tract infection [Unknown]
  - Transient ischaemic attack [Unknown]
  - Confusional state [Unknown]
  - Blood pressure increased [Unknown]
  - Heart rate increased [Unknown]
  - Oxygen saturation decreased [Unknown]
  - Fall [Unknown]
